FAERS Safety Report 8614650 (Version 2)
Quarter: 2012Q4

REPORT INFORMATION
  Report Type: 
  Country: US (occurrence: US)
  Receive Date: 20120614
  Receipt Date: 20121015
  Transmission Date: 20130627
  Serious: Yes (Other)
  Sender: FDA-Public Use
  Company Number: US-ASTRAZENECA-2012SE00983

PATIENT
  Age: 65 Year
  Sex: Male
  Weight: 95.3 kg

DRUGS (8)
  1. ZOLADEX [Suspect]
     Indication: PROSTATE CANCER
     Route: 058
     Dates: start: 20110808, end: 20120808
  2. TOPAMAX [Concomitant]
     Indication: PAIN
     Route: 048
  3. TOPAMAX [Concomitant]
     Indication: NEUROPATHY PERIPHERAL
     Route: 048
  4. FINASTERIDE [Concomitant]
     Indication: PROSTATE CANCER
  5. TAMSULOSIN [Concomitant]
     Indication: PROSTATE CANCER
  6. POTASSIUM CHLORIDE [Concomitant]
     Indication: MUSCLE SPASMS
  7. MELOXICAM [Concomitant]
     Indication: ARTHRITIS
  8. OXYCODONE [Concomitant]
     Indication: PAIN

REACTIONS (16)
  - Blood urine present [Unknown]
  - Nephrolithiasis [Unknown]
  - Chills [Recovering/Resolving]
  - Neuralgia [Not Recovered/Not Resolved]
  - Lymphadenopathy [Unknown]
  - Dysphagia [Unknown]
  - Pain [Unknown]
  - Chromaturia [Unknown]
  - Drug ineffective [Unknown]
  - Adverse drug reaction [Unknown]
  - Spinal pain [Not Recovered/Not Resolved]
  - Paranoia [Unknown]
  - Back pain [Not Recovered/Not Resolved]
  - Hyperhidrosis [Recovered/Resolved]
  - Hot flush [Recovered/Resolved]
  - Mood altered [Not Recovered/Not Resolved]
